FAERS Safety Report 5329433-6 (Version None)
Quarter: 2007Q1

REPORT INFORMATION
  Report Type: 
  Country: None (occurrence: None)
  Receive Date: 20070220
  Receipt Date: 20051220
  Transmission Date: 20070707
  Serious: Yes (Other)
  Sender: FDA-Public Use
  Company Number: HQWYE140923DEC05

PATIENT
  Age: 7 Year
  Sex: Female
  Weight: 29.51 kg

DRUGS (3)
  1. JUNIOR STRENGTH ADVIL [Suspect]
     Indication: PYREXIA
     Dosage: 1 CHEWABLE ONE TIME, ORAL
     Route: 048
     Dates: start: 20051219, end: 20051219
  2. NOVOLOG [Concomitant]
  3. LANTUS [Concomitant]

REACTIONS (2)
  - CONDITION AGGRAVATED [None]
  - DIABETES MELLITUS [None]
